FAERS Safety Report 8601986 (Version 3)
Quarter: 2012Q4

REPORT INFORMATION
  Report Type: Report from Study
  Country: JP (occurrence: JP)
  Receive Date: 20120606
  Receipt Date: 20121024
  Transmission Date: 20130627
  Serious: Yes (Death)
  Sender: FDA-Public Use
  Company Number: JP-ROCHE-1075185

PATIENT
  Age: 82 Year
  Sex: Male

DRUGS (11)
  1. ALTEPLASE [Suspect]
     Indication: THROMBOTIC CEREBRAL INFARCTION
     Route: 042
     Dates: start: 20120108, end: 20120108
  2. INSULIN HUMAN [Suspect]
     Indication: PRODUCT USED FOR UNKNOWN INDICATION
     Route: 051
  3. EDARAVONE [Suspect]
     Indication: THROMBOTIC CEREBRAL INFARCTION
     Route: 042
     Dates: start: 20120108, end: 20120110
  4. PLAVIX [Concomitant]
     Route: 048
     Dates: start: 20120109, end: 20120122
  5. TICLOPIDINE HYDROCHLORIDE [Concomitant]
  6. AMLODIPINE BESILATE [Concomitant]
     Route: 048
     Dates: start: 20120109
  7. TERAZOSIN HYDROCHLORIDE [Concomitant]
     Route: 048
     Dates: start: 20120109
  8. FAMOTIDINE [Concomitant]
     Route: 048
     Dates: start: 20120109
  9. DIART [Concomitant]
     Route: 048
     Dates: start: 20120109
  10. LECICARBON [Concomitant]
     Route: 054
     Dates: start: 20120109
  11. DICLOFENAC SODIUM [Concomitant]
     Route: 054
     Dates: start: 20120116

REACTIONS (1)
  - Multi-organ failure [Fatal]
